FAERS Safety Report 24423627 (Version 1)
Quarter: 2024Q4

REPORT INFORMATION
  Report Type: Spontaneous
  Country: CN (occurrence: CN)
  Receive Date: 20241010
  Receipt Date: 20241010
  Transmission Date: 20250114
  Serious: Yes (Other)
  Sender: BAXTER
  Company Number: None

PATIENT
  Age: 39 Year
  Sex: Female
  Weight: 73 kg

DRUGS (5)
  1. CYCLOPHOSPHAMIDE [Suspect]
     Active Substance: CYCLOPHOSPHAMIDE
     Indication: Breast cancer female
     Dosage: 1G, ONE TIME IN ONE DAY DILUTED WITH 0.9% SODIUM CHLORIDE INJECTION 50ML, D1
     Route: 041
     Dates: start: 20240814, end: 20240814
  2. SODIUM CHLORIDE [Suspect]
     Active Substance: SODIUM CHLORIDE
     Indication: Vehicle solution use
     Dosage: 100 ML, ONE TIME IN ONE DAY ALONG WITH STERILE WATER FOR INJECTION 50ML USED TO DILUTE EPIRUBICIN HY
     Route: 041
     Dates: start: 20240814, end: 20240814
  3. SODIUM CHLORIDE [Suspect]
     Active Substance: SODIUM CHLORIDE
     Dosage: 50 ML, ONE TIME IN ONE DAY USED TO DILUTE CYCLOPHOSPHAMIDE FOR INJECTION 1 G
     Route: 041
     Dates: start: 20240814, end: 20240814
  4. EPIRUBICIN HYDROCHLORIDE [Suspect]
     Active Substance: EPIRUBICIN HYDROCHLORIDE
     Indication: Breast cancer female
     Dosage: 130 MG, ONE TIME IN ONE DAY DILUTED WIH VEHICLE STERILE WATER FOR INJECTION 50ML ALONG WITH 0.9% SOD
     Route: 041
     Dates: start: 20240814, end: 20240814
  5. STERILE WATER [Suspect]
     Active Substance: WATER
     Indication: Vehicle solution use
     Dosage: 50 ML ONE TIME IN ONE DAY ALONG WITH 0.9% SODIUM CHLORIDE INJECTION 100ML USED TO DILUTE GIVEN EPIRU
     Route: 041
     Dates: start: 20240814, end: 20240814

REACTIONS (2)
  - Leukopenia [Recovered/Resolved]
  - Pyrexia [Unknown]

NARRATIVE: CASE EVENT DATE: 20240820
